FAERS Safety Report 7141257-6 (Version None)
Quarter: 2010Q4

REPORT INFORMATION
  Report Type: 
  Country: None (occurrence: None)
  Receive Date: 20101207
  Receipt Date: 20101124
  Transmission Date: 20110411
  Serious: Yes (Hospitalization, Other)
  Sender: FDA-Public Use
  Company Number: SE-PFIZER INC-2010163779

PATIENT
  Age: 31 Year
  Sex: Female

DRUGS (4)
  1. METHOTREXATE SODIUM [Suspect]
     Indication: PSORIATIC ARTHROPATHY
     Dosage: 2.5 MG, 25 MGW
     Route: 048
     Dates: start: 20080212, end: 20081203
  2. SALAZOPYRIN [Suspect]
     Indication: PSORIATIC ARTHROPATHY
     Dosage: 500 MG, 3 GMD
     Route: 048
     Dates: start: 20080212, end: 20081203
  3. PRONAXEN [Suspect]
     Dosage: UNK
     Dates: end: 20081119
  4. REMICADE [Concomitant]
     Dosage: 100 MG, UNK

REACTIONS (3)
  - HEPATIC STEATOSIS [None]
  - LIVER DISORDER [None]
  - PSORIATIC ARTHROPATHY [None]
